FAERS Safety Report 12411724 (Version 1)
Quarter: 2016Q2

REPORT INFORMATION
  Report Type: Spontaneous
  Country: US (occurrence: US)
  Receive Date: 20160527
  Receipt Date: 20160527
  Transmission Date: 20160815
  Serious: No
  Sender: FDA-Public Use
  Company Number: US-TARO-2016TAR00292

PATIENT
  Age: 82 Year
  Sex: Female

DRUGS (3)
  1. CLORAZEPATE DIPOTASSIUM TABLETS USP 15 MG [Suspect]
     Active Substance: CLORAZEPATE DIPOTASSIUM
     Dosage: UNK, 1X/DAY
     Dates: start: 1991
  2. AMBIEN (WINTHROP) [Concomitant]
     Dosage: 12.5 MG, UNK
  3. LOSARTAN POTASSIUM (AUROBINDO PHARMA) [Concomitant]
     Dosage: 50 MG, UNK

REACTIONS (6)
  - Middle insomnia [Not Recovered/Not Resolved]
  - Diarrhoea [Not Recovered/Not Resolved]
  - Frequent bowel movements [Not Recovered/Not Resolved]
  - Pain [Not Recovered/Not Resolved]
  - Pollakiuria [Not Recovered/Not Resolved]
  - Nocturia [Not Recovered/Not Resolved]

NARRATIVE: CASE EVENT DATE: 201602
